FAERS Safety Report 7993227 (Version 6)
Quarter: 2013Q2

REPORT INFORMATION
  Report Type: Spontaneous
  Country: US (occurrence: HN)
  Receive Date: 20110616
  Receipt Date: 20130614
  Transmission Date: 20140414
  Serious: Yes (Hospitalization)
  Sender: FDA-Public Use
  Company Number: US-JNJFOC-20080905638

PATIENT
  Age: 16 Year
  Sex: Male

DRUGS (2)
  1. MOTRIN [Suspect]
     Indication: PAIN
     Dates: start: 20051022
  2. MOTRIN [Suspect]
     Indication: INFLUENZA
     Dates: start: 20051022

REACTIONS (1)
  - Toxic epidermal necrolysis [Recovered/Resolved with Sequelae]
